FAERS Safety Report 10142900 (Version 2)
Quarter: 2014Q2

REPORT INFORMATION
  Report Type: Spontaneous
  Country: FR (occurrence: FR)
  Receive Date: 20140430
  Receipt Date: 20140509
  Transmission Date: 20141212
  Serious: Yes (Hospitalization)
  Sender: FDA-Public Use
  Company Number: FR-009507513-1404FRA013959

PATIENT
  Sex: Female

DRUGS (2)
  1. ISENTRESS [Suspect]
     Indication: HIV INFECTION
     Dosage: 2 DF, QD
     Route: 048
     Dates: start: 20140418
  2. TIVICAY [Suspect]
     Dosage: UNK
     Route: 065
     Dates: start: 20140410

REACTIONS (1)
  - Haemolytic anaemia [Recovering/Resolving]
